FAERS Safety Report 13887989 (Version 3)
Quarter: 2017Q4

REPORT INFORMATION
  Report Type: Spontaneous
  Country: JP (occurrence: JP)
  Receive Date: 20170821
  Receipt Date: 20171124
  Transmission Date: 20180320
  Serious: Yes (Other)
  Sender: FDA-Public Use
  Company Number: PHJP2017JP026008

PATIENT
  Age: 85 Year
  Sex: Female

DRUGS (1)
  1. VOTRIENT [Suspect]
     Active Substance: PAZOPANIB HYDROCHLORIDE
     Indication: SOFT TISSUE SARCOMA
     Dosage: 400 MG, QD
     Route: 048

REACTIONS (4)
  - Malignant neoplasm progression [Unknown]
  - Oesophageal oedema [Unknown]
  - Gastrointestinal oedema [Unknown]
  - Soft tissue sarcoma [Unknown]

NARRATIVE: CASE EVENT DATE: 201708
